FAERS Safety Report 8305335-8 (Version None)
Quarter: 2012Q2

REPORT INFORMATION
  Report Type: 
  Country: None (occurrence: None)
  Receive Date: 20120423
  Receipt Date: 20120419
  Transmission Date: 20120825
  Serious: Yes (Death)
  Sender: FDA-Public Use
  Company Number: US-ASTRAZENECA-2012SE25643

PATIENT
  Age: 64 Year
  Sex: Male

DRUGS (2)
  1. ACTIVASE [Concomitant]
  2. BRILINTA [Suspect]
     Route: 048

REACTIONS (1)
  - DEATH [None]
